FAERS Safety Report 4526866-2 (Version None)
Quarter: 2004Q4

REPORT INFORMATION
  Report Type: 
  Country: None (occurrence: None)
  Receive Date: 20041213
  Receipt Date: 20041129
  Transmission Date: 20050328
  Serious: Yes (Hospitalization)
  Sender: FDA-Public Use
  Company Number: 2004102127

PATIENT
  Age: 83 Year
  Sex: Female
  Weight: 60 kg

DRUGS (6)
  1. ALDACTONE [Suspect]
     Indication: ILL-DEFINED DISORDER
     Dosage: 1 DF (DAILY), ORAL
     Route: 048
     Dates: start: 20030615
  2. DILTIAZEM HYDROCHLORIDE [Suspect]
     Indication: ILL-DEFINED DISORDER
     Dosage: 300 MG (300 MG DAILY), ORAL
     Route: 048
     Dates: start: 19990615
  3. CLOPIDOGREL (CLOPIDOGREL) [Suspect]
     Indication: ILL-DEFINED DISORDER
     Dosage: 1 DF (DAILY), ORAL
     Route: 048
     Dates: start: 20040615, end: 20040820
  4. MADOPAR (BENSERAZIDE HYDROCHLORIDE, LEVODOPA) [Suspect]
     Indication: ILL-DEFINED DISORDER
     Dosage: 3 DF (MG, DAILY), ORAL
     Route: 048
     Dates: start: 19970615, end: 20040904
  5. OMEPRAZOLE [Suspect]
     Indication: ILL-DEFINED DISORDER
     Dosage: 10 MG (10 MG, DAILY), ORAL
     Route: 048
     Dates: start: 20030615
  6. NICORANDIL (NICORANDIL) [Suspect]
     Indication: ILL-DEFINED DISORDER
     Dosage: 20 MG (10 MG, EVERY DAY), ORAL
     Route: 048
     Dates: start: 19960616

REACTIONS (1)
  - IDIOPATHIC THROMBOCYTOPENIC PURPURA [None]
